FAERS Safety Report 7150085-7 (Version None)
Quarter: 2010Q4

REPORT INFORMATION
  Report Type: 
  Country: None (occurrence: None)
  Receive Date: 20101210
  Receipt Date: 20101129
  Transmission Date: 20110411
  Serious: Yes (Life-Threatening, Hospitalization, Other)
  Sender: FDA-Public Use
  Company Number: US-ELI_LILLY_AND_COMPANY-US201011007595

PATIENT
  Age: 58 Year
  Sex: Female

DRUGS (6)
  1. CYMBALTA [Suspect]
     Indication: ANXIETY
     Dosage: 60 MG, DAILY (1/D)
  2. CYMBALTA [Suspect]
     Dosage: 60 MG, DAILY (1/D)
  3. PLAVIX [Concomitant]
  4. VICODIN [Concomitant]
  5. VITAMINS [Concomitant]
     Dosage: UNK, DAILY (1/D)
  6. CHOLESTEROL [Concomitant]

REACTIONS (4)
  - BLOOD MAGNESIUM DECREASED [None]
  - BLOOD POTASSIUM DECREASED [None]
  - CRYING [None]
  - MYOCARDIAL INFARCTION [None]
